FAERS Safety Report 9645439 (Version 1)
Quarter: 2013Q4

REPORT INFORMATION
  Report Type: Spontaneous
  Country: FR (occurrence: FR)
  Receive Date: 20131025
  Receipt Date: 20131025
  Transmission Date: 20140711
  Serious: Yes (Other)
  Sender: FDA-Public Use
  Company Number: FR-ASTRAZENECA-2013SE77047

PATIENT
  Age: 81 Year
  Sex: Male

DRUGS (13)
  1. XYLOCAINE [Suspect]
     Indication: VENTRICULAR TACHYCARDIA
     Dosage: MAXIMAL DOSE
     Route: 042
     Dates: start: 201307, end: 201307
  2. BISOPROLOL [Concomitant]
  3. PREVISCAN [Concomitant]
  4. KARDEGIC [Concomitant]
  5. PLAVIX [Concomitant]
  6. LASILIX [Concomitant]
  7. TRINITRINE [Concomitant]
  8. TRIATEC [Concomitant]
  9. SIMVASTATINE [Concomitant]
  10. EUPANTOL [Concomitant]
  11. SERETIDE [Concomitant]
  12. GABAPENTINE [Concomitant]
  13. CORDARONE [Concomitant]
     Route: 048
     Dates: end: 201307

REACTIONS (2)
  - Overdose [Unknown]
  - Clonic convulsion [Recovered/Resolved]
